FAERS Safety Report 25905921 (Version 1)
Quarter: 2025Q4

REPORT INFORMATION
  Report Type: Spontaneous
  Country: EU (occurrence: EU)
  Receive Date: 20251010
  Receipt Date: 20251010
  Transmission Date: 20260117
  Serious: Yes (Death, Hospitalization, Other)
  Sender: SANDOZ
  Company Number: EU-SA-2019SA339898

PATIENT
  Age: 16 Year
  Sex: Male

DRUGS (6)
  1. CYCLOSPORINE [Suspect]
     Active Substance: CYCLOSPORINE
     Indication: Chronic myeloid leukaemia
     Dosage: UNK
     Route: 065
  2. CYCLOSPORINE [Suspect]
     Active Substance: CYCLOSPORINE
     Indication: Bone marrow conditioning regimen
  3. MYCOPHENOLATE MOFETIL [Suspect]
     Active Substance: MYCOPHENOLATE MOFETIL
     Indication: Chronic myeloid leukaemia
     Dosage: UNK
     Route: 065
  4. MYCOPHENOLATE MOFETIL [Suspect]
     Active Substance: MYCOPHENOLATE MOFETIL
     Indication: Bone marrow conditioning regimen
  5. PREDNISONE [Suspect]
     Active Substance: PREDNISONE
     Indication: Chronic myeloid leukaemia
     Dosage: UNK
     Route: 065
  6. PREDNISONE [Suspect]
     Active Substance: PREDNISONE
     Indication: Bone marrow conditioning regimen

REACTIONS (4)
  - Cerebral aspergillosis [Fatal]
  - Bronchopulmonary aspergillosis [Fatal]
  - Neutropenia [Not Recovered/Not Resolved]
  - Cytomegalovirus viraemia [Recovering/Resolving]
